FAERS Safety Report 10290947 (Version 1)
Quarter: 2014Q3

REPORT INFORMATION
  Report Type: Spontaneous
  Country: US (occurrence: None)
  Receive Date: 20140708
  Receipt Date: 20140708
  Transmission Date: 20150326
  Serious: No
  Sender: FDA-Public Use
  Company Number: None

PATIENT
  Age: 32 Year
  Sex: Female
  Weight: 56.7 kg

DRUGS (1)
  1. MIRENA [Suspect]
     Active Substance: LEVONORGESTREL

REACTIONS (6)
  - Feeling abnormal [None]
  - Vaginal haemorrhage [None]
  - Dysuria [None]
  - Back pain [None]
  - Abdominal pain [None]
  - Cystitis [None]

NARRATIVE: CASE EVENT DATE: 20140707
